FAERS Safety Report 5127742-7 (Version None)
Quarter: 2006Q4

REPORT INFORMATION
  Report Type: 
  Country: None (occurrence: None)
  Receive Date: 20061016
  Receipt Date: 20060328
  Transmission Date: 20070319
  Serious: Yes (Hospitalization)
  Sender: FDA-Public Use
  Company Number: HQWYE567429MAR06

PATIENT
  Sex: Female
  Weight: 38 kg

DRUGS (9)
  1. ENBREL [Suspect]
     Indication: RHEUMATOID ARTHRITIS
     Route: 058
     Dates: start: 20060202, end: 20060519
  2. PARAMESONE [Suspect]
     Indication: NEPHROTIC SYNDROME
     Dosage: 4 MG, UNSPECIFIED
     Route: 048
     Dates: start: 20051220, end: 20060528
  3. PARAMESONE [Suspect]
     Dosage: 2 MG, UNSPECIFIED FREQUENCY
     Dates: start: 20060529
  4. PERSANTIN [Concomitant]
     Indication: NEPHROTIC SYNDROME
     Route: 048
     Dates: start: 20050817
  5. ALLOPURINOL [Concomitant]
     Indication: HYPERURICAEMIA
     Route: 048
     Dates: start: 20060320
  6. PARIET [Concomitant]
     Indication: GASTRIC ULCER
     Route: 048
     Dates: start: 20060325
  7. RENIVACE [Concomitant]
     Indication: HYPERTENSION
     Route: 048
     Dates: start: 20051109, end: 20060313
  8. LASIX [Concomitant]
     Indication: NEPHROTIC SYNDROME
     Route: 048
     Dates: start: 20051012
  9. LANSOPRAZOLE [Concomitant]
     Indication: GASTRIC ULCER
     Route: 048
     Dates: start: 20051011, end: 20060324

REACTIONS (12)
  - ALOPECIA [None]
  - AORTIC CALCIFICATION [None]
  - BACK PAIN [None]
  - CONDITION AGGRAVATED [None]
  - INTERVERTEBRAL DISCITIS [None]
  - LUNG INFECTION PSEUDOMONAL [None]
  - PAIN IN EXTREMITY [None]
  - PNEUMONIA STAPHYLOCOCCAL [None]
  - PSOAS ABSCESS [None]
  - RHEUMATOID ARTHRITIS [None]
  - STAPHYLOCOCCAL SEPSIS [None]
  - STOMATITIS [None]
